FAERS Safety Report 6186978-7 (Version None)
Quarter: 2009Q2

REPORT INFORMATION
  Report Type: 
  Country: None (occurrence: None)
  Receive Date: 20090508
  Receipt Date: 20090508
  Transmission Date: 20091009
  Serious: No
  Sender: FDA-Public Use
  Company Number: None

PATIENT
  Age: 51 Year
  Sex: Female
  Weight: 79.3795 kg

DRUGS (2)
  1. ULTRAVATE [Suspect]
     Indication: BLISTER
     Dosage: 0.05%  AS NEEDED TOP
     Route: 061
     Dates: start: 20090420, end: 20090506
  2. ULTRAVATE [Suspect]
     Indication: RASH
     Dosage: 0.05%  AS NEEDED TOP
     Route: 061
     Dates: start: 20090420, end: 20090506

REACTIONS (2)
  - POST PROCEDURAL COMPLICATION [None]
  - RASH [None]
